FAERS Safety Report 21722401 (Version 1)
Quarter: 2022Q4

REPORT INFORMATION
  Report Type: Report from Study
  Country: US (occurrence: US)
  Receive Date: 20221213
  Receipt Date: 20221213
  Transmission Date: 20230113
  Serious: Yes (Death, Other)
  Sender: FDA-Public Use
  Company Number: US-SUN PHARMACEUTICAL INDUSTRIES LTD-2022R1-368459

PATIENT
  Age: 2 Year
  Sex: Male

DRUGS (2)
  1. FENTANYL [Suspect]
     Active Substance: FENTANYL
     Indication: Product used for unknown indication
     Dosage: UNK
     Route: 065
  2. MORPHINE [Suspect]
     Active Substance: MORPHINE
     Indication: Product used for unknown indication
     Dosage: UNK
     Route: 065

REACTIONS (8)
  - Death [Fatal]
  - Toxicity to various agents [Unknown]
  - Hypotension [Unknown]
  - Cardiac arrest [Unknown]
  - Bradycardia [Unknown]
  - Depressed level of consciousness [Unknown]
  - Coma [Unknown]
  - Metabolic acidosis [Unknown]
